FAERS Safety Report 6511175-2 (Version None)
Quarter: 2009Q4

REPORT INFORMATION
  Report Type: 
  Country: None (occurrence: None)
  Receive Date: 20091222
  Receipt Date: 20091217
  Transmission Date: 20100525
  Serious: Yes (Other)
  Sender: FDA-Public Use
  Company Number: BR-TEVA-218572USA

PATIENT
  Age: 52 Year
  Sex: Male
  Weight: 105 kg

DRUGS (4)
  1. PIMOZIDE TABLETS [Suspect]
     Indication: SCHIZOPHRENIA
     Route: 048
     Dates: start: 20080101, end: 20080101
  2. ANTIHYPERTENSIVES [Concomitant]
     Indication: HYPERTENSION
     Dates: start: 20070101
  3. FLUNITRAZEPAM [Concomitant]
     Indication: INSOMNIA
     Dosage: IN 1 HOUR OF SLEEP
     Route: 048
     Dates: start: 20040101
  4. LORAZEPAM [Concomitant]
     Indication: INSOMNIA
     Dates: start: 20040101

REACTIONS (3)
  - CONFUSIONAL STATE [None]
  - DISORIENTATION [None]
  - DRUG INEFFECTIVE [None]
